FAERS Safety Report 25646185 (Version 1)
Quarter: 2025Q3

REPORT INFORMATION
  Report Type: Spontaneous
  Country: CN (occurrence: CN)
  Receive Date: 20250805
  Receipt Date: 20250805
  Transmission Date: 20251020
  Serious: Yes (Hospitalization)
  Sender: ABBVIE
  Company Number: CN-ABBVIE-6399911

PATIENT
  Age: 73 Year
  Sex: Male
  Weight: 55 kg

DRUGS (5)
  1. VENCLEXTA [Suspect]
     Active Substance: VENETOCLAX
     Indication: Leukocytosis
     Route: 048
     Dates: start: 20250706, end: 20250712
  2. VENCLEXTA [Suspect]
     Active Substance: VENETOCLAX
     Indication: Leukocytosis
     Route: 048
     Dates: start: 20250705, end: 20250705
  3. VENCLEXTA [Suspect]
     Active Substance: VENETOCLAX
     Indication: Leukocytosis
     Route: 048
     Dates: start: 20250704, end: 20250704
  4. AZACITIDINE [Suspect]
     Active Substance: AZACITIDINE
     Indication: Cough
     Route: 058
     Dates: start: 20250704, end: 20250710
  5. WATER FOR INJECTION [Concomitant]
     Active Substance: WATER
     Indication: Cough
     Dosage: STERILE
     Route: 058
     Dates: start: 20250704, end: 20250710

REACTIONS (3)
  - Neutrophil count decreased [Unknown]
  - Anaemia [Unknown]
  - Platelet count decreased [Unknown]

NARRATIVE: CASE EVENT DATE: 20250723
